FAERS Safety Report 8472911-1 (Version None)
Quarter: 2012Q2

REPORT INFORMATION
  Report Type: 
  Country: None (occurrence: None)
  Receive Date: 20120627
  Receipt Date: 20120613
  Transmission Date: 20120825
  Serious: No
  Sender: FDA-Public Use
  Company Number: US-ASTRAZENECA-2012SE39524

PATIENT
  Age: 70 Year
  Sex: Female
  Weight: 65.8 kg

DRUGS (3)
  1. CRESTOR [Suspect]
     Route: 048
     Dates: start: 20110101
  2. PREDNISONE TAB [Concomitant]
  3. ORENCIA [Concomitant]

REACTIONS (2)
  - ALOPECIA [None]
  - INTENTIONAL DRUG MISUSE [None]
